FAERS Safety Report 6944481-8 (Version None)
Quarter: 2010Q3

REPORT INFORMATION
  Report Type: 
  Country: None (occurrence: None)
  Receive Date: 20100827
  Receipt Date: 20100817
  Transmission Date: 20110219
  Serious: Yes (Other)
  Sender: FDA-Public Use
  Company Number: GB-PFIZER INC-2010096464

PATIENT
  Age: 68 Year
  Sex: Female

DRUGS (6)
  1. SUNITINIB MALATE [Suspect]
     Indication: GASTROINTESTINAL STROMAL TUMOUR
     Dosage: 37.5 MG, 1X/DAY
     Dates: start: 20100201, end: 20100401
  2. GLEEVEC [Suspect]
     Indication: GASTROINTESTINAL STROMAL TUMOUR
     Dosage: 800 MG, 1X/DAY
     Dates: start: 20081216, end: 20091117
  3. AMLODIPINE [Concomitant]
     Route: 048
  4. FERROUS GLUCONATE [Concomitant]
     Route: 058
  5. MAXOLON [Concomitant]
     Route: 058
  6. SIMVASTATIN [Concomitant]
     Route: 048

REACTIONS (17)
  - ABDOMINAL DISTENSION [None]
  - ACUTE MYOCARDIAL INFARCTION [None]
  - ANAEMIA [None]
  - ASTHENIA [None]
  - ATRIOVENTRICULAR BLOCK FIRST DEGREE [None]
  - DECREASED APPETITE [None]
  - DIARRHOEA [None]
  - DISEASE PROGRESSION [None]
  - GASTROINTESTINAL STROMAL TUMOUR [None]
  - HEPATIC MASS [None]
  - LETHARGY [None]
  - LIP DRY [None]
  - MALAISE [None]
  - MYOCARDIAL INFARCTION [None]
  - NAUSEA [None]
  - PULMONARY EMBOLISM [None]
  - VENTRICULAR EXTRASYSTOLES [None]
